FAERS Safety Report 6111046 (Version 10)
Quarter: 2013Q1

REPORT INFORMATION
  Report Type: Spontaneous
  Country: US (occurrence: US)
  Receive Date: 20060821
  Receipt Date: 20130114
  Transmission Date: 20140127
  Serious: Yes (Hospitalization, Other)
  Sender: FDA-Public Use
  Company Number: PHEH2006US10419

PATIENT
  Age: 62 None
  Sex: Female
  Weight: 55.33 kg

DRUGS (12)
  1. AREDIA [Suspect]
     Indication: OSTEOPOROSIS
     Route: 042
     Dates: start: 2002, end: 20051007
  2. ZOMETA [Suspect]
  3. CELEBREX [Concomitant]
  4. PRILOSEC [Concomitant]
  5. PREVACID [Concomitant]
  6. HORMONES NOS [Concomitant]
  7. CALCIUM [Concomitant]
  8. PROTONIX ^PHARMACIA^ [Concomitant]
     Indication: GASTROINTESTINAL DISORDER
  9. VITAMINS NOS [Concomitant]
  10. MINERALS NOS [Concomitant]
  11. TORADOL [Concomitant]
  12. COMPAZINE [Concomitant]

REACTIONS (35)
  - Osteonecrosis of jaw [Unknown]
  - Tooth disorder [Unknown]
  - Tooth infection [Unknown]
  - Gingival pain [Unknown]
  - Gingival bleeding [Unknown]
  - Gingival erythema [Unknown]
  - Erythema [Unknown]
  - Irritable bowel syndrome [Unknown]
  - Oedema peripheral [Unknown]
  - Tenderness [Unknown]
  - Synovial cyst [Unknown]
  - Melanocytic naevus [Unknown]
  - Atrophy [Unknown]
  - Urethral disorder [Unknown]
  - Toothache [Unknown]
  - Skin disorder [Unknown]
  - Oral herpes [Unknown]
  - Oesophageal haemorrhage [Unknown]
  - Polyp [Unknown]
  - Blister [Unknown]
  - Dysphonia [Unknown]
  - Ear pain [Unknown]
  - Eye pain [Unknown]
  - Dental caries [Unknown]
  - Periodontal disease [Unknown]
  - Angina pectoris [Unknown]
  - Arrhythmia [Unknown]
  - Arthritis [Unknown]
  - Atrophic vulvovaginitis [Unknown]
  - Osteoporosis [Unknown]
  - Hypertension [Unknown]
  - Aortic arteriosclerosis [Unknown]
  - Osteopenia [Unknown]
  - Pathological fracture [Unknown]
  - Dyspnoea [Unknown]
